FAERS Safety Report 10671455 (Version 2)
Quarter: 2015Q3

REPORT INFORMATION
  Report Type: Report from Study
  Country: US (occurrence: US)
  Receive Date: 20141223
  Receipt Date: 20150804
  Transmission Date: 20151125
  Serious: Yes (Hospitalization)
  Sender: FDA-Public Use
  Company Number: US-BIOMARINAP-US-2014-105040

PATIENT
  Age: 10 Year
  Sex: Male

DRUGS (2)
  1. ALDURAZYME [Suspect]
     Active Substance: LARONIDASE
     Dosage: 15 MG, QW
     Route: 041
     Dates: start: 20050302, end: 200505
  2. ALDURAZYME [Suspect]
     Active Substance: LARONIDASE
     Indication: MUCOPOLYSACCHARIDOSIS I
     Dosage: 15 MG, QW
     Route: 041
     Dates: start: 20140227

REACTIONS (2)
  - Hip surgery [Unknown]
  - Gait disturbance [Unknown]

NARRATIVE: CASE EVENT DATE: 20141207
